FAERS Safety Report 9966546 (Version 2)
Quarter: 2014Q1

REPORT INFORMATION
  Report Type: Report from Study
  Country: US (occurrence: US)
  Receive Date: 20140305
  Receipt Date: 20140305
  Transmission Date: 20141002
  Serious: No
  Sender: FDA-Public Use
  Company Number: US-ABBVIE-13P-163-1116342-00

PATIENT
  Age: 52 Year
  Sex: Female

DRUGS (10)
  1. HUMIRA [Suspect]
     Indication: COLITIS ULCERATIVE
     Dates: start: 20130630, end: 20130630
  2. HUMIRA [Suspect]
     Dates: start: 20130714, end: 20130714
  3. HUMIRA [Suspect]
     Dates: start: 20130801
  4. 6-MP [Concomitant]
     Indication: COLITIS ULCERATIVE
  5. HYDROCHLOROTHIAZIDE [Concomitant]
     Indication: BLOOD PRESSURE
     Dosage: 25 MG DAILY
  6. SYNTHROID [Concomitant]
     Indication: THYROID DISORDER
  7. VITAMIN D [Concomitant]
     Indication: VITAMIN SUPPLEMENTATION
  8. IRON [Concomitant]
     Indication: MINERAL SUPPLEMENTATION
  9. BAYER ASPIRIN [Concomitant]
     Indication: PRODUCT USED FOR UNKNOWN INDICATION
  10. CALCIUM [Concomitant]
     Indication: PRODUCT USED FOR UNKNOWN INDICATION
     Dosage: 600 MG DAILY

REACTIONS (10)
  - Wrong technique in drug usage process [Unknown]
  - Defaecation urgency [Not Recovered/Not Resolved]
  - Blood potassium decreased [Unknown]
  - Haemorrhoidal haemorrhage [Not Recovered/Not Resolved]
  - Haematochezia [Not Recovered/Not Resolved]
  - Injection site pain [Recovered/Resolved]
  - Abdominal pain upper [Not Recovered/Not Resolved]
  - Diarrhoea [Not Recovered/Not Resolved]
  - Back pain [Not Recovered/Not Resolved]
  - Infection [Not Recovered/Not Resolved]
